FAERS Safety Report 7299191-7 (Version None)
Quarter: 2011Q1

REPORT INFORMATION
  Report Type: 
  Country: None (occurrence: None)
  Receive Date: 20110217
  Receipt Date: 20110209
  Transmission Date: 20110831
  Serious: Yes (Hospitalization, Other)
  Sender: FDA-Public Use
  Company Number: DE-PFIZER INC-2010112566

PATIENT
  Age: 72 Year
  Sex: Female
  Weight: 50 kg

DRUGS (2)
  1. CELEBREX [Suspect]
     Indication: ARTHRALGIA
     Dosage: 200 MG, 1X/DAY
     Route: 048
     Dates: start: 20100801
  2. CELEBREX [Suspect]
     Indication: ARTHRITIS

REACTIONS (5)
  - ASTHENIA [None]
  - DYSGEUSIA [None]
  - CARDIOVASCULAR DISORDER [None]
  - AGEUSIA [None]
  - WEIGHT DECREASED [None]
